FAERS Safety Report 23735386 (Version 3)
Quarter: 2024Q2

REPORT INFORMATION
  Report Type: Spontaneous
  Country: US (occurrence: US)
  Receive Date: 20240412
  Receipt Date: 20240501
  Transmission Date: 20240716
  Serious: Yes (Other)
  Sender: FDA-Public Use
  Company Number: US-ORGANON-O2404USA001472

PATIENT
  Age: 40 Year
  Sex: Female
  Weight: 102.2 kg

DRUGS (1)
  1. NEXPLANON [Suspect]
     Active Substance: ETONOGESTREL
     Indication: Contraception
     Dosage: 1 IMPLANT (68 MG) (LEFT ARM)
     Route: 059
     Dates: start: 20240313, end: 20240410

REACTIONS (7)
  - Implant site necrosis [Unknown]
  - Surgery [Unknown]
  - Implant site vesicles [Unknown]
  - Implant site infection [Unknown]
  - Implant site reaction [Unknown]
  - Complication associated with device [Recovered/Resolved]
  - Complication of device removal [Recovered/Resolved]

NARRATIVE: CASE EVENT DATE: 20240316
